FAERS Safety Report 9102917 (Version 5)
Quarter: 2013Q3

REPORT INFORMATION
  Report Type: Spontaneous
  Country: JP (occurrence: JP)
  Receive Date: 20130219
  Receipt Date: 20130703
  Transmission Date: 20140515
  Serious: Yes (Death, Hospitalization, Disabling)
  Sender: FDA-Public Use
  Company Number: JP-PFIZER INC-2013060485

PATIENT
  Age: 64 Year
  Sex: Male
  Weight: 52 kg

DRUGS (5)
  1. INLYTA [Suspect]
     Indication: RENAL CELL CARCINOMA
     Dosage: 5 MG, 2X/DAY
     Route: 048
     Dates: start: 20130208, end: 20130210
  2. CELECOX [Suspect]
     Indication: BACK PAIN
     Dosage: 100 MG, 2X/DAY
     Route: 048
     Dates: start: 20130208, end: 20130210
  3. PROTECADIN [Suspect]
     Indication: GASTRITIS
     Dosage: 10 MG, 2X/DAY
     Route: 048
     Dates: start: 20130208, end: 20130210
  4. LORFENAMIN [Concomitant]
     Indication: MIGRAINE
     Dosage: 60 MG, 1X/DAY
     Route: 048
     Dates: start: 20130201, end: 20130210
  5. SENNOSIDES [Concomitant]
     Indication: CONSTIPATION
     Dosage: 12 MG, 1X/DAY
     Route: 048
     Dates: start: 20130201, end: 20130210

REACTIONS (13)
  - Disseminated intravascular coagulation [Fatal]
  - Sepsis [Fatal]
  - Septic shock [Fatal]
  - Retroperitoneal abscess [Fatal]
  - Intestinal perforation [Fatal]
  - Hypoglycaemia [Recovered/Resolved]
  - Hypotension [Not Recovered/Not Resolved]
  - Adrenal insufficiency [Unknown]
  - Diarrhoea [Unknown]
  - Hepatic function abnormal [Recovering/Resolving]
  - Renal impairment [Not Recovered/Not Resolved]
  - Pyrexia [Recovered/Resolved]
  - Vomiting [Recovered/Resolved]
